FAERS Safety Report 8174729-6 (Version None)
Quarter: 2012Q1

REPORT INFORMATION
  Report Type: 
  Country: None (occurrence: None)
  Receive Date: 20120229
  Receipt Date: 20120209
  Transmission Date: 20120608
  Serious: Yes (Other)
  Sender: FDA-Public Use
  Company Number: JP-GLAXOSMITHKLINE-B0781506A

PATIENT
  Sex: Female

DRUGS (6)
  1. RELENZA [Suspect]
     Indication: INFLUENZA
     Dosage: 4IUAX PER DAY
     Route: 055
     Dates: start: 20120207, end: 20120208
  2. MIYA BM [Concomitant]
     Indication: INFLUENZA
     Dosage: 2IUAX PER DAY
     Route: 048
     Dates: start: 20120207, end: 20120210
  3. RELENZA [Suspect]
     Dosage: 2IUAX PER DAY
     Route: 055
     Dates: start: 20120208, end: 20120209
  4. ASVERIN [Concomitant]
     Indication: INFLUENZA
     Dosage: 2IUAX PER DAY
     Route: 048
     Dates: start: 20120207, end: 20120210
  5. ACETAMINOPHEN [Concomitant]
     Indication: INFLUENZA
     Dosage: 1IUAX PER DAY
     Route: 048
     Dates: start: 20120208, end: 20120208
  6. VENEN [Concomitant]
     Indication: INFLUENZA
     Dosage: 2IUAX PER DAY
     Route: 048
     Dates: start: 20120207, end: 20120210

REACTIONS (2)
  - VOMITING [None]
  - DELIRIUM [None]
